FAERS Safety Report 4366246-6 (Version None)
Quarter: 2004Q2

REPORT INFORMATION
  Report Type: 
  Country: None (occurrence: None)
  Receive Date: 20040527
  Receipt Date: 20040518
  Transmission Date: 20050107
  Serious: Yes (Life-Threatening)
  Sender: FDA-Public Use
  Company Number: GB-JNJFOC-20040503847

PATIENT
  Age: 59 Year
  Sex: Male

DRUGS (6)
  1. TRAMADOL HCL [Suspect]
     Indication: OSTEOARTHRITIS
     Dosage: 50MG 1 OR 2 QDS.
     Route: 049
  2. CELEBREX [Concomitant]
     Route: 049
  3. CO-CODAMOL [Concomitant]
     Route: 049
  4. CO-CODAMOL [Concomitant]
     Indication: OSTEOARTHRITIS
     Route: 049
  5. ISOSORBIDE MONOITRATE [Concomitant]
     Indication: CIRCULATORY COLLAPSE
     Route: 049
  6. ATENOLOL [Concomitant]
     Indication: ANGINA PECTORIS
     Route: 049

REACTIONS (1)
  - ANGINA PECTORIS [None]
